FAERS Safety Report 25548433 (Version 1)
Quarter: 2025Q3

REPORT INFORMATION
  Report Type: Spontaneous
  Country: US (occurrence: None)
  Receive Date: 20250711
  Receipt Date: 20250711
  Transmission Date: 20251021
  Serious: Yes (Hospitalization)
  Sender: FDA-CTU
  Company Number: None

PATIENT
  Age: 30 Year
  Sex: Male
  Weight: 55.3 kg

DRUGS (5)
  1. TROSPIUM CHLORIDE\XANOMELINE [Suspect]
     Active Substance: TROSPIUM CHLORIDE\XANOMELINE
     Indication: Schizophrenia
     Dosage: 1 DF DOSAGE FORM DAILY ORAL
     Route: 048
     Dates: start: 20250616, end: 20250624
  2. HALOPERIDOL DECANOATE [Concomitant]
     Active Substance: HALOPERIDOL DECANOATE
     Dates: start: 20241216
  3. BENZTROPINE [Concomitant]
     Active Substance: BENZTROPINE
     Dates: start: 20240815
  4. LAMOTRIGINE [Concomitant]
     Active Substance: LAMOTRIGINE
     Dates: start: 20250317
  5. PRAVASTATIN [Concomitant]
     Active Substance: PRAVASTATIN
     Dates: start: 20250408

REACTIONS (2)
  - Urinary tract infection [None]
  - Catheter site discomfort [None]

NARRATIVE: CASE EVENT DATE: 20250624
